FAERS Safety Report 6074572-8 (Version None)
Quarter: 2009Q1

REPORT INFORMATION
  Report Type: 
  Country: None (occurrence: None)
  Receive Date: 20090206
  Receipt Date: 20080308
  Transmission Date: 20090719
  Serious: Yes (Other)
  Sender: FDA-Public Use
  Company Number: 2008AP000625

PATIENT

DRUGS (1)
  1. LISINOPRIL [Suspect]
     Indication: HYPERTENSION
     Dosage: 20 MG;QD

REACTIONS (4)
  - AZOTAEMIA [None]
  - BLOOD CREATININE INCREASED [None]
  - HAEMODIALYSIS [None]
  - HYPERPARATHYROIDISM SECONDARY [None]
